FAERS Safety Report 22116746 (Version 1)
Quarter: 2023Q1

REPORT INFORMATION
  Report Type: Spontaneous
  Country: US (occurrence: US)
  Receive Date: 20230320
  Receipt Date: 20230320
  Transmission Date: 20230418
  Serious: Yes (Hospitalization, Other)
  Sender: FDA-Public Use
  Company Number: US-BIOVITRUM-2023-US-006871

PATIENT
  Age: 4 Year
  Sex: Female

DRUGS (5)
  1. EMAPALUMAB [Suspect]
     Active Substance: EMAPALUMAB
     Indication: Still^s disease
     Dosage: 3 MG/KG 2 EVERY 1 WEEK FOR 4 WEEKS
  2. EMAPALUMAB [Suspect]
     Active Substance: EMAPALUMAB
     Indication: Haemophagocytic lymphohistiocytosis
  3. ANAKINRA [Suspect]
     Active Substance: ANAKINRA
     Indication: Still^s disease
  4. ANAKINRA [Suspect]
     Active Substance: ANAKINRA
     Indication: Haemophagocytic lymphohistiocytosis
     Dosage: FREQUENCY: PER DAY
  5. ANAKINRA [Suspect]
     Active Substance: ANAKINRA
     Dosage: FREQUENCY: PER DAY

REACTIONS (8)
  - Off label use [Unknown]
  - Interstitial lung disease [Unknown]
  - Pyrexia [Unknown]
  - C-reactive protein increased [Unknown]
  - Cytopenia [Unknown]
  - Hyperferritinaemia [Unknown]
  - Pneumonia [Unknown]
  - Respiratory distress [Unknown]
